FAERS Safety Report 9411741 (Version 1)
Quarter: 2013Q3

REPORT INFORMATION
  Report Type: Spontaneous
  Country: US (occurrence: None)
  Receive Date: 20130719
  Receipt Date: 20130719
  Transmission Date: 20140515
  Serious: No
  Sender: FDA-Public Use
  Company Number: None

PATIENT
  Age: 67 Year
  Sex: Male
  Weight: 83.92 kg

DRUGS (1)
  1. LANSOPRAZOLE [Suspect]
     Indication: DRUG INEFFECTIVE
     Dates: start: 20130312

REACTIONS (4)
  - Product substitution issue [None]
  - Product quality issue [None]
  - Drug ineffective [None]
  - Gastrooesophageal reflux disease [None]
